FAERS Safety Report 25832688 (Version 1)
Quarter: 2025Q3

REPORT INFORMATION
  Report Type: Spontaneous
  Country: IN (occurrence: IN)
  Receive Date: 20250922
  Receipt Date: 20250922
  Transmission Date: 20251020
  Serious: Yes (Life-Threatening, Other)
  Sender: DR REDDYS
  Company Number: IN-RDY-IND/2025/09/014191

PATIENT
  Age: 68 Year
  Sex: Male

DRUGS (4)
  1. TICAGRELOR [Suspect]
     Active Substance: TICAGRELOR
     Indication: Antiplatelet therapy
  2. ASPIRIN [Concomitant]
     Active Substance: ASPIRIN
     Indication: Antiplatelet therapy
  3. ATORVASTATIN [Concomitant]
     Active Substance: ATORVASTATIN
     Indication: Antiplatelet therapy
     Route: 048
  4. FONDAPARINUX [Concomitant]
     Active Substance: FONDAPARINUX
     Indication: Antiplatelet therapy
     Route: 058

REACTIONS (1)
  - Thrombocytopenia [Unknown]
